FAERS Safety Report 19996483 (Version 2)
Quarter: 2022Q4

REPORT INFORMATION
  Report Type: Spontaneous
  Country: DE (occurrence: DE)
  Receive Date: 20211025
  Receipt Date: 20221020
  Transmission Date: 20230113
  Serious: Yes (Hospitalization)
  Sender: FDA-Public Use
  Company Number: DE-TAKEDA-2021TUS065702

PATIENT
  Age: 45 Year
  Sex: Male
  Weight: 69 kg

DRUGS (1)
  1. MESALAMINE [Suspect]
     Active Substance: MESALAMINE
     Indication: Product used for unknown indication
     Dosage: UNK
     Route: 048

REACTIONS (8)
  - Acute kidney injury [Unknown]
  - Abdominal pain lower [Recovering/Resolving]
  - Flank pain [Recovering/Resolving]
  - Decreased appetite [Recovering/Resolving]
  - Hydronephrosis [Unknown]
  - Ureterolithiasis [Unknown]
  - Renal colic [Unknown]
  - Renal impairment [Recovering/Resolving]
